FAERS Safety Report 11835608 (Version 1)
Quarter: 2015Q4

REPORT INFORMATION
  Report Type: Spontaneous
  Country: US (occurrence: None)
  Receive Date: 20151214
  Receipt Date: 20151214
  Transmission Date: 20160305
  Serious: Yes (Other)
  Sender: FDA-Public Use
  Company Number: None

PATIENT
  Age: 1 Month
  Sex: Female
  Weight: 52.62 kg

DRUGS (4)
  1. SKYLA [Suspect]
     Active Substance: LEVONORGESTREL
     Dates: start: 20150729
  2. VITEX [Concomitant]
  3. FERMENTED COD LIVER OIL [Concomitant]
  4. RAW MULTIVITAMIN [Concomitant]

REACTIONS (7)
  - Acne cystic [None]
  - Cyst [None]
  - Pain in extremity [None]
  - Muscle spasms [None]
  - Vaginal haemorrhage [None]
  - Arthralgia [None]
  - Orgasm abnormal [None]

NARRATIVE: CASE EVENT DATE: 20150818
